FAERS Safety Report 14617209 (Version 5)
Quarter: 2018Q3

REPORT INFORMATION
  Report Type: Spontaneous
  Country: ES (occurrence: ES)
  Receive Date: 20180309
  Receipt Date: 20180807
  Transmission Date: 20181010
  Serious: Yes (Death, Hospitalization)
  Sender: FDA-Public Use
  Company Number: ES-ALLERGAN-1755332US

PATIENT
  Age: 72 Year
  Sex: Female

DRUGS (8)
  1. MIRTAZAPINE. [Interacting]
     Active Substance: MIRTAZAPINE
     Indication: DEPRESSION
     Dosage: UNK
     Route: 065
  2. ASENAPINE MALEATE ? BP [Suspect]
     Active Substance: ASENAPINE MALEATE
     Indication: DEPRESSION
     Dosage: UNK
     Route: 048
  3. LUDIOMIL [Suspect]
     Active Substance: MAPROTILINE HYDROCHLORIDE
     Dosage: 75 MG, UNK (1/2?0?1/2)
     Route: 065
     Dates: start: 201404, end: 201404
  4. LUDIOMIL [Suspect]
     Active Substance: MAPROTILINE HYDROCHLORIDE
     Dosage: 18.75 MG, UNK (1/2?0?1/2)
     Route: 048
     Dates: start: 201404, end: 201404
  5. LUDIOMIL [Suspect]
     Active Substance: MAPROTILINE HYDROCHLORIDE
     Indication: DEPRESSION
     Dosage: 37.5 MG, UNK
     Route: 065
  6. AMITRIPTYLINE HYDROCHLORIDE. [Suspect]
     Active Substance: AMITRIPTYLINE HYDROCHLORIDE
     Indication: DEPRESSION
     Dosage: UNK
     Route: 065
  7. ALPRAZOLAM. [Interacting]
     Active Substance: ALPRAZOLAM
     Indication: PRODUCT USED FOR UNKNOWN INDICATION
     Dosage: 1 MG, QD, 1/2?1/2?1
     Route: 065
     Dates: start: 201404
  8. FLUOXETINE HCL UNK [Interacting]
     Active Substance: FLUOXETINE HYDROCHLORIDE
     Indication: DEPRESSION
     Dosage: UNK
     Route: 065

REACTIONS (11)
  - Hyponatraemia [Fatal]
  - Cardiac arrest [Fatal]
  - Off label use [Unknown]
  - Cerebrovascular accident [Fatal]
  - Seizure [Fatal]
  - Aspiration [Fatal]
  - Drug interaction [Unknown]
  - Embolic stroke [Fatal]
  - Respiration abnormal [Fatal]
  - Depressed level of consciousness [Fatal]
  - Polydipsia [Fatal]

NARRATIVE: CASE EVENT DATE: 201604
